FAERS Safety Report 18994052 (Version 2)
Quarter: 2021Q3

REPORT INFORMATION
  Report Type: Spontaneous
  Country: JP (occurrence: JP)
  Receive Date: 20210311
  Receipt Date: 20210720
  Transmission Date: 20211014
  Serious: Yes (Death, Other)
  Sender: FDA-Public Use
  Company Number: JP-ROCHE-2784565

PATIENT
  Age: 78 Year
  Sex: Male
  Weight: 66.4 kg

DRUGS (6)
  1. AMLODIPINE [AMLODIPINE BESILATE] [Concomitant]
     Active Substance: AMLODIPINE BESYLATE
     Route: 048
     Dates: end: 20210222
  2. AVASTIN [Suspect]
     Active Substance: BEVACIZUMAB
     Indication: HEPATOCELLULAR CARCINOMA
     Dosage: MOST RECENT DOSE PRIOR TO THE EVENTS ONSET RECEIVED ON 08/FEB/2021
     Route: 041
     Dates: start: 20201116
  3. TECENTRIQ [Suspect]
     Active Substance: ATEZOLIZUMAB
     Indication: HEPATOCELLULAR CARCINOMA
     Dosage: MOST RECENT DOSE PRIOR TO THE EVENTS ONSET RECEIVED ON 08/FEB/2021
     Route: 041
     Dates: start: 20201102
  4. TAKECAB [Concomitant]
     Active Substance: VONOPRAZAN FUMARATE
     Route: 048
     Dates: end: 20210222
  5. REMITCH OD [Concomitant]
     Route: 048
     Dates: start: 20200302, end: 20210222
  6. FEXOFENADINE HYDROCHLORIDE. [Concomitant]
     Active Substance: FEXOFENADINE HYDROCHLORIDE
     Route: 048
     Dates: start: 20200126, end: 20210222

REACTIONS (4)
  - Ascites [Unknown]
  - Hepatic fibrosis [Unknown]
  - Portal hypertension [Unknown]
  - Oesophageal varices haemorrhage [Fatal]

NARRATIVE: CASE EVENT DATE: 20210222
